FAERS Safety Report 7086177-0 (Version None)
Quarter: 2010Q4

REPORT INFORMATION
  Report Type: 
  Country: None (occurrence: None)
  Receive Date: 20101105
  Receipt Date: 20101026
  Transmission Date: 20110411
  Serious: Yes (Other)
  Sender: FDA-Public Use
  Company Number: US-JNJFOC-20101007300

PATIENT
  Sex: Female
  Weight: 55.34 kg

DRUGS (11)
  1. REMICADE [Suspect]
     Indication: RHEUMATOID ARTHRITIS
     Route: 042
  2. REMICADE [Suspect]
     Route: 042
  3. REMICADE [Suspect]
     Indication: COLITIS ULCERATIVE
     Route: 042
  4. REMICADE [Suspect]
     Route: 042
  5. REMICADE [Suspect]
     Indication: CROHN'S DISEASE
     Route: 042
  6. REMICADE [Suspect]
     Route: 042
  7. PENTASA [Concomitant]
     Indication: ANTIINFLAMMATORY THERAPY
  8. PREDNISONE [Concomitant]
  9. MULTI-VITAMINS [Concomitant]
     Indication: NUTRITIONAL SUPPORT
  10. VITAMIN D [Concomitant]
     Indication: NUTRITIONAL SUPPORT
  11. CALCIUM [Concomitant]
     Indication: NUTRITIONAL SUPPORT

REACTIONS (4)
  - BACK PAIN [None]
  - MUSCULOSKELETAL DISORDER [None]
  - NERVOUS SYSTEM DISORDER [None]
  - SENSATION OF HEAVINESS [None]
